FAERS Safety Report 11718890 (Version 1)
Quarter: 2015Q4

REPORT INFORMATION
  Report Type: Report from Study
  Country: KR (occurrence: KR)
  Receive Date: 20151110
  Receipt Date: 20151110
  Transmission Date: 20160304
  Serious: Yes (Hospitalization)
  Sender: FDA-Public Use
  Company Number: KR-B.I. PHARMACEUTICALS,INC./RIDGEFIELD-2015-BI-61157RK

PATIENT
  Age: 71 Year
  Sex: Female
  Weight: 48 kg

DRUGS (5)
  1. SOTALON [Concomitant]
     Indication: ATRIAL FIBRILLATION
     Dosage: 40 MG
     Route: 048
     Dates: start: 20150729, end: 20150820
  2. JOINS [Concomitant]
     Indication: ARTHROPATHY
     Dosage: 200 MG
     Route: 048
     Dates: start: 20150213, end: 20150820
  3. PRADAXA [Suspect]
     Active Substance: DABIGATRAN ETEXILATE MESYLATE
     Indication: ATRIAL FIBRILLATION
     Dosage: 220 MG
     Route: 048
     Dates: start: 20150729, end: 20150820
  4. GABAPENIN [Concomitant]
     Indication: RADICULOPATHY
     Dosage: 300 MG
     Route: 048
     Dates: start: 20150617, end: 20150820
  5. CELEBREX [Concomitant]
     Active Substance: CELECOXIB
     Indication: ARTHROPATHY
     Dosage: 200 MG
     Route: 048
     Dates: start: 20150722, end: 20150820

REACTIONS (1)
  - Radiation proctitis [Not Recovered/Not Resolved]

NARRATIVE: CASE EVENT DATE: 20150821
